FAERS Safety Report 7333164-0 (Version None)
Quarter: 2011Q1

REPORT INFORMATION
  Report Type: 
  Country: None (occurrence: None)
  Receive Date: 20110222
  Receipt Date: 20110121
  Transmission Date: 20110831
  Serious: Yes (Other)
  Sender: FDA-Public Use
  Company Number: 027568

PATIENT
  Age: 59 Year
  Sex: Male

DRUGS (3)
  1. ATARAX [Concomitant]
  2. XYZAL [Suspect]
     Indication: PRURIGO
     Dosage: (5 MG QD ORAL)
     Route: 048
     Dates: start: 20110114, end: 20110101
  3. PREDNISOLONE [Concomitant]

REACTIONS (1)
  - DYSPNOEA [None]
